FAERS Safety Report 9025158 (Version 1)
Quarter: 2013Q1

REPORT INFORMATION
  Report Type: Spontaneous
  Country: US (occurrence: US)
  Receive Date: 20130122
  Receipt Date: 20130122
  Transmission Date: 20140127
  Serious: Yes (Hospitalization)
  Sender: FDA-Public Use
  Company Number: US-BAXTER-2013BAX001573

PATIENT
  Sex: Male

DRUGS (2)
  1. LACTATED RINGERS SOLUTION [Suspect]
     Indication: JOINT IRRIGATION
     Route: 065
     Dates: start: 20121218, end: 20121218
  2. SODIUM CHLORIDE [Suspect]
     Indication: JOINT IRRIGATION
     Route: 065
     Dates: start: 20121218, end: 20121218

REACTIONS (2)
  - Bacterial infection [Recovering/Resolving]
  - Postoperative wound infection [Recovering/Resolving]
